FAERS Safety Report 4896043-4 (Version None)
Quarter: 2005Q4

REPORT INFORMATION
  Report Type: 
  Country: None (occurrence: None)
  Receive Date: 20051220
  Receipt Date: 20050718
  Transmission Date: 20060501
  Serious: Yes (Life-Threatening, Hospitalization, Other)
  Sender: FDA-Public Use
  Company Number: US133146

PATIENT
  Age: 55 Year
  Sex: Male
  Weight: 90.8 kg

DRUGS (10)
  1. ENBREL [Suspect]
     Indication: RHEUMATOID ARTHRITIS
     Dosage: 25 MG, 2 IN 1 WEEKS, SC
     Route: 058
     Dates: start: 20030624, end: 20050311
  2. AMITRIPTYLINE HCL [Concomitant]
  3. ACETYLSALICYLIC ACID SRT [Concomitant]
  4. CLONAZEPAM [Concomitant]
  5. VALSARTAN [Concomitant]
  6. FUROSEMIDE [Concomitant]
  7. INSULIN LISPRO [Concomitant]
  8. CARVEDILOL [Concomitant]
  9. PRAMINPEXOLE DIHYDROCHLORIDE [Concomitant]
  10. GABAPENTIN [Concomitant]

REACTIONS (1)
  - DIFFUSE LARGE B-CELL LYMPHOMA [None]
